FAERS Safety Report 6474533-0 (Version None)
Quarter: 2009Q4

REPORT INFORMATION
  Report Type: 
  Country: None (occurrence: None)
  Receive Date: 20091204
  Receipt Date: 20091126
  Transmission Date: 20100525
  Serious: Yes (Death, Other)
  Sender: FDA-Public Use
  Company Number: FR-PFIZER INC-2008011673

PATIENT
  Age: 11 Year
  Sex: Male
  Weight: 29 kg

DRUGS (1)
  1. GENOTONORM [Suspect]
     Indication: GROWTH HORMONE DEFICIENCY
     Dosage: 0.9 MG, 1X/DAY
     Route: 058
     Dates: start: 20070330, end: 20071114

REACTIONS (1)
  - MEDULLOBLASTOMA RECURRENT [None]
